FAERS Safety Report 7934734-9 (Version None)
Quarter: 2011Q4

REPORT INFORMATION
  Report Type: 
  Country: None (occurrence: None)
  Receive Date: 20111122
  Receipt Date: 20111115
  Transmission Date: 20120403
  Serious: Yes (Death, Life-Threatening, Hospitalization)
  Sender: FDA-Public Use
  Company Number: ES-JNJFOC-20110205609

PATIENT
  Age: 79 Year
  Sex: Female

DRUGS (3)
  1. GOLIMUMAB [Suspect]
     Route: 058
     Dates: start: 20101109
  2. GOLIMUMAB [Suspect]
     Route: 058
  3. GOLIMUMAB [Suspect]
     Indication: RHEUMATOID ARTHRITIS
     Route: 058

REACTIONS (13)
  - ATRIAL FIBRILLATION [None]
  - UPPER GASTROINTESTINAL HAEMORRHAGE [None]
  - RESPIRATORY FAILURE [None]
  - PO2 DECREASED [None]
  - RESPIRATORY TRACT INFECTION [None]
  - BLOOD PH DECREASED [None]
  - PCO2 INCREASED [None]
  - ANAEMIA [None]
  - HAEMOPHILUS TEST POSITIVE [None]
  - GASTROINTESTINAL HAEMORRHAGE [None]
  - PSEUDOMONAS TEST POSITIVE [None]
  - CARDIAC FAILURE CONGESTIVE [None]
  - HYPOKALAEMIA [None]
